FAERS Safety Report 13100453 (Version 1)
Quarter: 2017Q1

REPORT INFORMATION
  Report Type: Spontaneous
  Country: US (occurrence: US)
  Receive Date: 20170109
  Receipt Date: 20170109
  Transmission Date: 20170428
  Serious: No
  Sender: FDA-Public Use
  Company Number: None

PATIENT
  Age: 49 Year
  Sex: Female
  Weight: 56.25 kg

DRUGS (2)
  1. ARMOUR THYROID [Concomitant]
     Active Substance: THYROID, PORCINE
  2. DYSPORT [Suspect]
     Active Substance: ABOBOTULINUMTOXINA
     Indication: SKIN WRINKLING
     Route: 058
     Dates: start: 20161123

REACTIONS (11)
  - Urticaria [None]
  - Pyrexia [None]
  - Abdominal pain [None]
  - Headache [None]
  - Swelling face [None]
  - Depressed level of consciousness [None]
  - Panic attack [None]
  - Pruritus [None]
  - Dysphagia [None]
  - Back pain [None]
  - Tinnitus [None]

NARRATIVE: CASE EVENT DATE: 20170104
